FAERS Safety Report 4666549-1 (Version None)
Quarter: 2005Q2

REPORT INFORMATION
  Report Type: 
  Country: None (occurrence: None)
  Receive Date: 20050517
  Receipt Date: 20050504
  Transmission Date: 20051028
  Serious: Yes (Hospitalization, Other)
  Sender: FDA-Public Use
  Company Number: USA031254723

PATIENT
  Age: 68 Year
  Sex: Female
  Weight: 37 kg

DRUGS (16)
  1. FORTEO [Suspect]
     Indication: OSTEOPOROSIS
     Dosage: 20 UG/1 DAY
     Dates: start: 20031212
  2. ALBUTEROL [Concomitant]
  3. ATROVENT [Concomitant]
  4. CALCIUM WITH VITAMIN D [Concomitant]
  5. LEVAQUIN [Concomitant]
  6. ATIVAN [Concomitant]
  7. WELLBUTRIN [Concomitant]
  8. ADVAIR DISKUS 100/50 [Concomitant]
  9. VITAMIN E [Concomitant]
  10. OMEGA [Concomitant]
  11. ESTROGEL [Concomitant]
  12. ACIDOPHILUS [Concomitant]
  13. NEXIUM [Concomitant]
  14. PANCRELIPASE [Concomitant]
  15. ASPIRIN [Concomitant]
  16. MUCINEX (GUAIFENESIN L.A.) [Concomitant]

REACTIONS (25)
  - ARTHRALGIA [None]
  - CARDIAC OPERATION [None]
  - DIARRHOEA [None]
  - DYSPHONIA [None]
  - FLUID RETENTION [None]
  - GASTROOESOPHAGEAL REFLUX DISEASE [None]
  - HEADACHE [None]
  - HYPERHIDROSIS [None]
  - HYPERSENSITIVITY [None]
  - INFLUENZA [None]
  - INJECTION SITE ERYTHEMA [None]
  - INJECTION SITE RASH [None]
  - MUSCULAR WEAKNESS [None]
  - PAIN [None]
  - PHARMACEUTICAL PRODUCT COMPLAINT [None]
  - POLLAKIURIA [None]
  - POLYDIPSIA [None]
  - POSTNASAL DRIP [None]
  - PSEUDOMONAS INFECTION [None]
  - PULMONARY MYCOSIS [None]
  - RESPIRATORY ARREST [None]
  - SINUS DISORDER [None]
  - VENOUS OCCLUSION [None]
  - VERTIGO [None]
  - WEIGHT DECREASED [None]
